FAERS Safety Report 17139053 (Version 1)
Quarter: 2019Q4

REPORT INFORMATION
  Report Type: Spontaneous
  Country: US (occurrence: US)
  Receive Date: 20191210
  Receipt Date: 20191210
  Transmission Date: 20200122
  Serious: Yes (Hospitalization)
  Sender: FDA-Public Use
  Company Number: None

PATIENT
  Age: 50 Year
  Sex: Female
  Weight: 103 kg

DRUGS (1)
  1. LUMASON [Suspect]
     Active Substance: SULFUR HEXAFLUORIDE
     Indication: STRESS ECHOCARDIOGRAM
     Route: 042
     Dates: start: 20191126, end: 20191126

REACTIONS (7)
  - Wheezing [None]
  - Tachycardia [None]
  - Flushing [None]
  - Erythema [None]
  - Hypoaesthesia oral [None]
  - Feeling abnormal [None]
  - Cough [None]

NARRATIVE: CASE EVENT DATE: 20191126
